FAERS Safety Report 23774649 (Version 2)
Quarter: 2024Q3

REPORT INFORMATION
  Report Type: Spontaneous
  Country: JP (occurrence: JP)
  Receive Date: 20240423
  Receipt Date: 20240722
  Transmission Date: 20241016
  Serious: Yes (Other)
  Sender: BRISTOL MYERS SQUIBB
  Company Number: JP-ONO-2024JP004585AA

PATIENT
  Age: 7 Decade
  Sex: Female

DRUGS (4)
  1. OPDIVO [Suspect]
     Active Substance: NIVOLUMAB
     Indication: Oesophageal carcinoma
     Route: 041
  2. FLUOROURACIL [Concomitant]
     Active Substance: FLUOROURACIL
     Indication: Oesophageal carcinoma
  3. CISPLATIN [Concomitant]
     Active Substance: CISPLATIN
     Indication: Oesophageal carcinoma
  4. PIPERACILLIN SODIUM\TAZOBACTAM SODIUM [Concomitant]
     Active Substance: PIPERACILLIN SODIUM\TAZOBACTAM SODIUM
     Indication: Product used for unknown indication

REACTIONS (12)
  - Drug reaction with eosinophilia and systemic symptoms [Unknown]
  - White blood cell count increased [Unknown]
  - Oedema peripheral [Unknown]
  - Pyrexia [Unknown]
  - Rash [Unknown]
  - C-reactive protein increased [Unknown]
  - Pneumonia [Unknown]
  - Disseminated intravascular coagulation [Unknown]
  - Shock symptom [Unknown]
  - Procalcitonin increased [Unknown]
  - Staphylococcal infection [Unknown]
  - Platelet count decreased [Unknown]
